FAERS Safety Report 6497666-1 (Version None)
Quarter: 2009Q4

REPORT INFORMATION
  Report Type: 
  Country: None (occurrence: None)
  Receive Date: 20091215
  Receipt Date: 20091208
  Transmission Date: 20100525
  Serious: Yes (Hospitalization)
  Sender: FDA-Public Use
  Company Number: JP-ELI_LILLY_AND_COMPANY-JP200911003718

PATIENT
  Sex: Male
  Weight: 61 kg

DRUGS (8)
  1. SOMATROPIN [Suspect]
     Indication: GROWTH HORMONE DEFICIENCY
     Dosage: 0.19 MG, DAILY (1/D)
     Route: 058
     Dates: start: 20060705, end: 20091112
  2. CORTRIL [Concomitant]
     Indication: SECONDARY ADRENOCORTICAL INSUFFICIENCY
     Dosage: 30 MG, DAILY (1/D)
     Route: 048
     Dates: start: 19890101
  3. PHENOBARBITAL TAB [Concomitant]
     Indication: EPILEPSY
     Dosage: 90 MG, DAILY (1/D)
     Route: 048
     Dates: start: 20050330
  4. SUCRALFATE [Concomitant]
     Indication: GASTRIC ULCER
     Dosage: 3 G, DAILY (1/D)
     Route: 048
     Dates: start: 20050330
  5. ALFAROL [Concomitant]
     Indication: OSTEOPOROSIS
     Dosage: 0.5 UG, DAILY (1/D)
     Route: 048
     Dates: start: 20050330
  6. THYRADIN S [Concomitant]
     Indication: SECONDARY HYPOTHYROIDISM
     Dosage: 125 UG, DAILY (1/D)
     Route: 048
     Dates: start: 19890101
  7. MEVALOTIN [Concomitant]
     Indication: HYPERCHOLESTEROLAEMIA
     Dosage: 10 MG, DAILY (1/D)
     Route: 048
     Dates: start: 20050330
  8. GASTER D [Concomitant]
     Indication: GASTRIC ULCER
     Dosage: 20 MG, DAILY (1/D)
     Route: 048
     Dates: start: 20050330

REACTIONS (1)
  - GLIOBLASTOMA [None]
